FAERS Safety Report 7478242-0 (Version None)
Quarter: 2011Q2

REPORT INFORMATION
  Report Type: 
  Country: None (occurrence: None)
  Receive Date: 20110513
  Receipt Date: 20110505
  Transmission Date: 20111010
  Serious: Yes (Hospitalization)
  Sender: FDA-Public Use
  Company Number: PHHY2011DE25307

PATIENT
  Sex: Female

DRUGS (7)
  1. PREDNISONE HEXAL [Concomitant]
     Dosage: 20 MG, UNK
     Route: 048
  2. EXELON [Suspect]
     Indication: DEMENTIA
     Dosage: 4.6 MG/ 24 HRS
     Route: 062
     Dates: start: 20101206
  3. CITALOPRAM HYDROBROMIDE [Concomitant]
     Indication: DEPRESSION
     Dosage: 20 MG, UNK
     Route: 048
  4. EXELON [Suspect]
     Dosage: 9.5 MG/ 24 HRS
     Route: 062
     Dates: start: 20110117, end: 20110317
  5. METAMIZOLE [Concomitant]
     Indication: ARTHRALGIA
     Dosage: 500 MG, UNK
     Route: 048
  6. CLOZAPINE [Concomitant]
     Dates: start: 20110301
  7. DOPADURA RETARD [Concomitant]
     Indication: PARKINSON'S DISEASE
     Dosage: 100/25 (LEVODOPA, CARBIDOPA)
     Route: 048
     Dates: start: 20110201

REACTIONS (7)
  - CONFUSIONAL STATE [None]
  - FALL [None]
  - ERYSIPELAS [None]
  - HALLUCINATION [None]
  - LOGORRHOEA [None]
  - PSYCHOTIC DISORDER [None]
  - MUSCLE SPASMS [None]
